FAERS Safety Report 21220562 (Version 2)
Quarter: 2022Q3

REPORT INFORMATION
  Report Type: Report from Study
  Country: TW (occurrence: None)
  Receive Date: 20220817
  Receipt Date: 20220822
  Transmission Date: 20221026
  Serious: Yes (Hospitalization)
  Sender: FDA-Public Use
  Company Number: TW-Merck Healthcare KGaA-9343088

PATIENT
  Age: 25 Year
  Sex: Male

DRUGS (1)
  1. REBIF [Suspect]
     Active Substance: INTERFERON BETA-1A
     Indication: Multiple sclerosis
     Dates: start: 20220216

REACTIONS (2)
  - Multiple sclerosis [Unknown]
  - Vertigo positional [Unknown]

NARRATIVE: CASE EVENT DATE: 20220401
